FAERS Safety Report 8919302 (Version 1)
Quarter: 2012Q4

REPORT INFORMATION
  Report Type: 
  Country: US (occurrence: US)
  Receive Date: 20121121
  Receipt Date: 20121121
  Transmission Date: 20130627
  Serious: No
  Sender: FDA-Public Use
  Company Number: US-PFIZER INC-2012286940

PATIENT
  Age: 45 Year
  Sex: Female

DRUGS (4)
  1. CHANTIX [Suspect]
     Dosage: 1 mg, 2x/day
     Route: 048
  2. AMBIEN [Concomitant]
     Dosage: 10 mg, as needed (take 1/2-1 tablet(s) at bedtime)
     Route: 048
  3. ALLOPURINOL [Concomitant]
     Dosage: 300 mg, 1x/day
     Route: 048
  4. ULORIC [Concomitant]
     Dosage: 40 mg, 1x/day
     Route: 048

REACTIONS (8)
  - Anxiety [Unknown]
  - Ligament sprain [Unknown]
  - Liver function test abnormal [Unknown]
  - Fatigue [Unknown]
  - Pain in extremity [Unknown]
  - Arthralgia [Unknown]
  - Back pain [Unknown]
  - Plantar fasciitis [Unknown]
